FAERS Safety Report 4487110-8 (Version None)
Quarter: 2004Q4

REPORT INFORMATION
  Report Type: 
  Country: None (occurrence: None)
  Receive Date: 20041027
  Receipt Date: 20041019
  Transmission Date: 20050328
  Serious: Yes (Other)
  Sender: FDA-Public Use
  Company Number: NL-GLAXOSMITHKLINE-B0349214A

PATIENT
  Age: 62 Year
  Sex: Male

DRUGS (7)
  1. AVANDIA [Suspect]
     Dosage: 4MG PER DAY
     Route: 065
     Dates: start: 20040819, end: 20040914
  2. ASPIRIN [Concomitant]
     Dosage: 80MG PER DAY
     Route: 065
  3. LISINOPRIL [Concomitant]
     Route: 065
  4. METFORMIN HCL [Concomitant]
     Dosage: 500MG THREE TIMES PER DAY
     Route: 065
  5. AMARYL [Concomitant]
     Dosage: 3MG TWICE PER DAY
  6. METOPROLOL SUCCINATE [Concomitant]
     Dosage: 100MG TWICE PER DAY
  7. XATRAL SR [Concomitant]
     Dosage: 10MG PER DAY

REACTIONS (2)
  - DYSPNOEA [None]
  - WEIGHT INCREASED [None]
